FAERS Safety Report 22861349 (Version 6)
Quarter: 2023Q4

REPORT INFORMATION
  Report Type: Spontaneous
  Country: US (occurrence: US)
  Receive Date: 20230824
  Receipt Date: 20231120
  Transmission Date: 20240110
  Serious: No
  Sender: FDA-Public Use
  Company Number: US-PFIZER INC-202200646645

PATIENT
  Age: 72 Year
  Sex: Female

DRUGS (2)
  1. BRAFTOVI [Suspect]
     Active Substance: ENCORAFENIB
     Indication: Colon cancer
     Dosage: 75 MG
     Dates: start: 20230329
  2. BRAFTOVI [Suspect]
     Active Substance: ENCORAFENIB
     Dosage: 300 MG

REACTIONS (6)
  - Malaise [Unknown]
  - Dysphonia [Unknown]
  - Cough [Unknown]
  - Neoplasm progression [Unknown]
  - Blood pressure abnormal [Unknown]
  - Cardiac disorder [Unknown]
